FAERS Safety Report 18319516 (Version 2)
Quarter: 2020Q4

REPORT INFORMATION
  Report Type: Spontaneous
  Country: GB (occurrence: GB)
  Receive Date: 20200928
  Receipt Date: 20201016
  Transmission Date: 20210113
  Serious: Yes (Hospitalization)
  Sender: FDA-Public Use
  Company Number: GB-VERTEX PHARMACEUTICALS-2020-019063

PATIENT
  Sex: Female

DRUGS (10)
  1. SYMKEVI [Suspect]
     Active Substance: IVACAFTOR\TEZACAFTOR
     Indication: CYSTIC FIBROSIS
     Dosage: 1 DOSAGE FORM, QD (AM)
     Route: 048
     Dates: start: 202002
  2. CIPROFLOXACIN. [Concomitant]
     Active Substance: CIPROFLOXACIN
  3. SERETIDE [Concomitant]
     Active Substance: FLUTICASONE PROPIONATE\SALMETEROL XINAFOATE
     Dosage: SERETIDE INHALER
  4. KALYDECO [Suspect]
     Active Substance: IVACAFTOR
     Indication: CYSTIC FIBROSIS
     Dosage: 150 MG, QD (PM)
     Route: 048
     Dates: start: 202002
  5. VITAMIN D [COLECALCIFEROL] [Concomitant]
     Active Substance: CHOLECALCIFEROL
  6. FLUCLOXACILLIN [Concomitant]
     Active Substance: FLUCLOXACILLIN
  7. VITAMIN C [Concomitant]
     Active Substance: ASCORBIC ACID
  8. BUTAMOL [Concomitant]
     Dosage: PYBUTAMOL INHALER
  9. SALINE [SODIUM CHLORIDE] [Concomitant]
     Active Substance: SODIUM CHLORIDE
     Dosage: HYPOTONIC SALINE
  10. NOVORAPID [Concomitant]
     Active Substance: INSULIN ASPART
     Dosage: TRESIBA AND NOVORAPID

REACTIONS (3)
  - Infective pulmonary exacerbation of cystic fibrosis [Recovering/Resolving]
  - Treatment noncompliance [Unknown]
  - Weight decreased [Recovered/Resolved]

NARRATIVE: CASE EVENT DATE: 20200909
